FAERS Safety Report 7428908-3 (Version None)
Quarter: 2011Q2

REPORT INFORMATION
  Report Type: 
  Country: None (occurrence: None)
  Receive Date: 20110415
  Receipt Date: 20110415
  Transmission Date: 20111010
  Serious: Yes (Hospitalization)
  Sender: FDA-Public Use
  Company Number: None

PATIENT
  Age: 50 Year
  Sex: Female
  Weight: 107.5025 kg

DRUGS (2)
  1. MORPHINE SULFATE [Suspect]
     Indication: INTERVERTEBRAL DISC DISORDER
     Dosage: 15MG BID PO
     Route: 048
  2. OXYCODONE HCL [Suspect]
     Indication: DIABETIC NEUROPATHY
     Dosage: 5MG - 10MG Q4H PRN PO
     Route: 048

REACTIONS (5)
  - LISTLESS [None]
  - OVERDOSE [None]
  - DISORIENTATION [None]
  - SOMNOLENCE [None]
  - DYSARTHRIA [None]
